FAERS Safety Report 9861978 (Version 2)
Quarter: 2014Q1

REPORT INFORMATION
  Report Type: Report from Study
  Country: US (occurrence: US)
  Receive Date: 20140203
  Receipt Date: 20140210
  Transmission Date: 20141002
  Serious: Yes (Other)
  Sender: FDA-Public Use
  Company Number: US-JNJFOC-20140110386

PATIENT
  Age: 69 Year
  Sex: Female

DRUGS (2)
  1. REMICADE [Suspect]
     Indication: PSORIASIS
     Route: 042
     Dates: start: 20120413, end: 20120709
  2. REMICADE [Suspect]
     Indication: PSORIASIS
     Route: 042
     Dates: start: 20120820, end: 20121226

REACTIONS (4)
  - Polyneuropathy [Unknown]
  - Peroneal nerve palsy [Unknown]
  - Squamous cell carcinoma [Unknown]
  - Anaemia [Unknown]
